FAERS Safety Report 7953605-5 (Version None)
Quarter: 2011Q4

REPORT INFORMATION
  Report Type: 
  Country: None (occurrence: None)
  Receive Date: 20111202
  Receipt Date: 20111122
  Transmission Date: 20120403
  Serious: Yes (Hospitalization, Other)
  Sender: FDA-Public Use
  Company Number: AR-PFIZER INC-2008047889

PATIENT
  Age: 67 Year
  Sex: Female
  Weight: 59 kg

DRUGS (8)
  1. LEVOTHYROXINE SODIUM [Concomitant]
     Dosage: UNK
     Route: 048
     Dates: start: 19970101
  2. SALMETEROL [Concomitant]
     Dosage: UNK
     Route: 055
     Dates: start: 20080404
  3. MEPREDNISONE [Concomitant]
     Dosage: UNK
     Route: 048
     Dates: start: 20080401, end: 20080527
  4. FLUOXETINE [Concomitant]
     Dosage: UNK
     Route: 048
     Dates: start: 20060101
  5. FLUTICASONE PROPIONATE [Concomitant]
     Dosage: UNK
     Route: 055
     Dates: start: 20080404
  6. EXEMESTANE [Suspect]
     Indication: BREAST CANCER
     Dosage: 25 MG, 1X/DAY
     Route: 048
     Dates: start: 20080327, end: 20080607
  7. ALPRAZOLAM [Concomitant]
     Dosage: UNK
     Route: 048
     Dates: start: 20000101
  8. ALBUTEROL SULFATE AUTOHALER [Concomitant]
     Dosage: UNK
     Route: 055
     Dates: start: 20080404, end: 20080527

REACTIONS (1)
  - ORGANISING PNEUMONIA [None]
